FAERS Safety Report 14685233 (Version 1)
Quarter: 2018Q1

REPORT INFORMATION
  Report Type: Spontaneous
  Country: US (occurrence: US)
  Receive Date: 20180327
  Receipt Date: 20180327
  Transmission Date: 20180509
  Serious: Yes (Hospitalization)
  Sender: FDA-Public Use
  Company Number: US-ROCHE-2095463

PATIENT
  Age: 56 Year
  Sex: Male

DRUGS (6)
  1. DAPTOMYCIN. [Suspect]
     Active Substance: DAPTOMYCIN
     Indication: PRODUCT USED FOR UNKNOWN INDICATION
     Dosage: ONGOING: NO
     Route: 042
     Dates: end: 20180320
  2. TESTOSTERONE. [Concomitant]
     Active Substance: TESTOSTERONE
  3. XELJANZ [Concomitant]
     Active Substance: TOFACITINIB CITRATE
  4. VANCOMYCIN [Suspect]
     Active Substance: VANCOMYCIN
     Indication: PRODUCT USED FOR UNKNOWN INDICATION
     Route: 042
     Dates: start: 20180213
  5. ENBREL [Concomitant]
     Active Substance: ETANERCEPT
  6. ACTEMRA [Suspect]
     Active Substance: TOCILIZUMAB
     Indication: RHEUMATOID ARTHRITIS
     Route: 058
     Dates: start: 20171101

REACTIONS (2)
  - Staphylococcal infection [Unknown]
  - Asthma [Unknown]

NARRATIVE: CASE EVENT DATE: 20180201
